FAERS Safety Report 7796917-0 (Version None)
Quarter: 2011Q4

REPORT INFORMATION
  Report Type: 
  Country: None (occurrence: None)
  Receive Date: 20111003
  Receipt Date: 20110920
  Transmission Date: 20120403
  Serious: Yes (Hospitalization, Other)
  Sender: FDA-Public Use
  Company Number: 2011SP043817

PATIENT
  Sex: Male

DRUGS (3)
  1. PEG-INTRON [Suspect]
     Indication: HEPATITIS C
     Dates: start: 20110624
  2. RIBAVIRIN [Suspect]
     Indication: HEPATITIS C
     Dosage: 600 MG;BID, BID;UNK
     Dates: start: 20110624
  3. TELAPRIVIR [Suspect]
     Indication: HEPATITIS C
     Dosage: UNK;UNK
     Dates: start: 20110624, end: 20110916

REACTIONS (10)
  - PNEUMONIA [None]
  - HAEMATOCHEZIA [None]
  - RED BLOOD CELL COUNT DECREASED [None]
  - THINKING ABNORMAL [None]
  - APHASIA [None]
  - ASTHENIA [None]
  - HAEMOGLOBIN DECREASED [None]
  - IMPAIRED WORK ABILITY [None]
  - OEDEMA [None]
  - GAIT DISTURBANCE [None]
